FAERS Safety Report 7930739-2 (Version None)
Quarter: 2011Q4

REPORT INFORMATION
  Report Type: 
  Country: None (occurrence: None)
  Receive Date: 20111121
  Receipt Date: 20111111
  Transmission Date: 20120403
  Serious: Yes (Death, Hospitalization)
  Sender: FDA-Public Use
  Company Number: US-GLAXOSMITHKLINE-A0871710A

PATIENT
  Age: 68 Year
  Sex: Female

DRUGS (1)
  1. AVANDIA [Suspect]
     Indication: DIABETES MELLITUS
     Dosage: 4MG TWICE PER DAY
     Route: 048
     Dates: start: 20010212, end: 20020501

REACTIONS (5)
  - CRYPTOGENIC CIRRHOSIS [None]
  - ENDOCARDITIS STAPHYLOCOCCAL [None]
  - SEPSIS [None]
  - HEPATIC FAILURE [None]
  - RENAL FAILURE [None]
